FAERS Safety Report 5225386-X (Version None)
Quarter: 2007Q1

REPORT INFORMATION
  Report Type: 
  Country: None (occurrence: None)
  Receive Date: 20070131
  Receipt Date: 20070125
  Transmission Date: 20070707
  Serious: Yes (Hospitalization)
  Sender: FDA-Public Use
  Company Number: FR-SHR-FR-2007-002389

PATIENT
  Age: 40 Year
  Sex: Female

DRUGS (11)
  1. CAMPATH [Suspect]
     Dosage: 30 MG, UNK
     Route: 042
     Dates: start: 20061205, end: 20061206
  2. ETOPOSIDE [Suspect]
     Route: 042
     Dates: start: 20061130, end: 20061203
  3. CISPLATIN [Suspect]
     Route: 042
     Dates: start: 20061130, end: 20061203
  4. CYTARABINE [Suspect]
     Route: 042
     Dates: start: 20061204, end: 20061204
  5. METHYLPREDNISOLONE 16MG TAB [Suspect]
     Route: 042
     Dates: start: 20061205
  6. FLUDARABINE PHOSPHAT (SH L 573) [Suspect]
     Route: 042
     Dates: start: 20061205
  7. ZELITREX [Concomitant]
  8. BACTRIM DS [Concomitant]
  9. SPECIAFOLDINE [Concomitant]
  10. ESOMEPRAZOLE MAGNESIUM [Concomitant]
  11. LUTERAN [Concomitant]

REACTIONS (4)
  - CONFUSIONAL STATE [None]
  - GRAND MAL CONVULSION [None]
  - HEADACHE [None]
  - PYREXIA [None]
